FAERS Safety Report 11944213 (Version 1)
Quarter: 2016Q1

REPORT INFORMATION
  Report Type: Spontaneous
  Country: US (occurrence: US)
  Receive Date: 20160125
  Receipt Date: 20160125
  Transmission Date: 20160526
  Serious: No
  Sender: FDA-Public Use
  Company Number: US-UNITED THERAPEUTICS-UNT-2015-013531

PATIENT
  Age: 51 Year
  Sex: Male
  Weight: 79.37 kg

DRUGS (3)
  1. REMODULIN [Suspect]
     Active Substance: TREPROSTINIL
     Dosage: 0.049 ?G/KG/MIN, CONTINUING
     Route: 058
  2. REMODULIN [Suspect]
     Active Substance: TREPROSTINIL
     Indication: PULMONARY ARTERIAL HYPERTENSION
     Dosage: 0.040 ?G/KG/MIN, CONTINUING
     Route: 058
     Dates: start: 20150211
  3. ADEMPAS [Concomitant]
     Active Substance: RIOCIGUAT
     Indication: PRODUCT USED FOR UNKNOWN INDICATION

REACTIONS (9)
  - Nasal congestion [Unknown]
  - Infusion site pain [Unknown]
  - Cough [Unknown]
  - Rhinorrhoea [Unknown]
  - Drug dose omission [Unknown]
  - Sinus disorder [Unknown]
  - Device dislocation [Unknown]
  - Device issue [Unknown]
  - Dyspnoea [Unknown]

NARRATIVE: CASE EVENT DATE: 201510
